FAERS Safety Report 6907867-3 (Version None)
Quarter: 2010Q3

REPORT INFORMATION
  Report Type: 
  Country: None (occurrence: None)
  Receive Date: 20100805
  Receipt Date: 20100727
  Transmission Date: 20110219
  Serious: Yes (Hospitalization)
  Sender: FDA-Public Use
  Company Number: JP-ASTRAZENECA-2010SE35381

PATIENT
  Age: 60 Year
  Sex: Male

DRUGS (1)
  1. IRESSA [Suspect]
     Route: 048
     Dates: end: 20100728

REACTIONS (1)
  - LIVER DISORDER [None]
